FAERS Safety Report 8267540-9 (Version None)
Quarter: 2012Q2

REPORT INFORMATION
  Report Type: 
  Country: None (occurrence: None)
  Receive Date: 20120405
  Receipt Date: 20120405
  Transmission Date: 20120825
  Serious: Yes (Hospitalization)
  Sender: FDA-Public Use
  Company Number: None

PATIENT
  Sex: Female
  Weight: 75.91 kg

DRUGS (5)
  1. TAXOL [Suspect]
     Dosage: 378 MG
     Dates: end: 20120301
  2. HYDROCODONE BITARTRATE [Concomitant]
  3. CARBOPLATIN [Suspect]
     Dosage: 818 MG
     Dates: end: 20120301
  4. LORAZEPAM [Concomitant]
  5. MORPHINE [Concomitant]

REACTIONS (4)
  - ABDOMINAL PAIN [None]
  - PYREXIA [None]
  - DYSPNOEA [None]
  - MUSCULAR WEAKNESS [None]
